FAERS Safety Report 7707845-0 (Version None)
Quarter: 2011Q3

REPORT INFORMATION
  Report Type: 
  Country: None (occurrence: None)
  Receive Date: 20110824
  Receipt Date: 20110810
  Transmission Date: 20111222
  Serious: Yes (Other)
  Sender: FDA-Public Use
  Company Number: US-BAYER-2011-072117

PATIENT
  Sex: Male

DRUGS (4)
  1. DABIGATRAN [Suspect]
  2. ASPIRIN [Suspect]
     Dosage: UNK
  3. PLAVIX [Suspect]
     Dosage: DAILY DOSE 75 MG
     Route: 048
     Dates: start: 20060101
  4. PLAVIX [Suspect]
     Dosage: DAILY DOSE 75 MG
     Route: 048
     Dates: start: 20110101

REACTIONS (2)
  - SKIN HAEMORRHAGE [None]
  - LIMB INJURY [None]
